FAERS Safety Report 5961200-2 (Version None)
Quarter: 2008Q4

REPORT INFORMATION
  Report Type: 
  Country: None (occurrence: None)
  Receive Date: 20081121
  Receipt Date: 20081118
  Transmission Date: 20090506
  Serious: Yes (Death, Hospitalization)
  Sender: FDA-Public Use
  Company Number: US-BIOGENIDEC-2008BI027752

PATIENT
  Age: 73 Year
  Sex: Female

DRUGS (15)
  1. TYSABRI [Suspect]
     Indication: MULTIPLE SCLEROSIS
     Route: 042
     Dates: start: 20071210, end: 20080821
  2. BELLAMINE [Concomitant]
     Indication: DRUG USE FOR UNKNOWN INDICATION
  3. NEURONTIN [Concomitant]
     Indication: DRUG USE FOR UNKNOWN INDICATION
  4. EFFEXOR [Concomitant]
     Indication: DRUG USE FOR UNKNOWN INDICATION
  5. AMANTADINE HCL [Concomitant]
     Indication: DRUG USE FOR UNKNOWN INDICATION
  6. ASTELIN [Concomitant]
     Indication: DRUG USE FOR UNKNOWN INDICATION
  7. DICYCLOMINE [Concomitant]
     Indication: DRUG USE FOR UNKNOWN INDICATION
  8. ENALAPRIL MALEATE [Concomitant]
     Indication: DRUG USE FOR UNKNOWN INDICATION
  9. FUROSEMIDE [Concomitant]
     Indication: DRUG USE FOR UNKNOWN INDICATION
  10. LUNESTA [Concomitant]
     Indication: DRUG USE FOR UNKNOWN INDICATION
  11. ASPIRIN [Concomitant]
     Indication: DRUG USE FOR UNKNOWN INDICATION
  12. NEXIUM [Concomitant]
     Indication: DRUG USE FOR UNKNOWN INDICATION
  13. SINGULAIR [Concomitant]
     Indication: DRUG USE FOR UNKNOWN INDICATION
  14. ZOCOR [Concomitant]
     Indication: DRUG USE FOR UNKNOWN INDICATION
  15. TIZANIDINE HCL [Concomitant]
     Indication: DRUG USE FOR UNKNOWN INDICATION

REACTIONS (15)
  - ACUTE RESPIRATORY FAILURE [None]
  - BACTERIAL CULTURE POSITIVE [None]
  - BRONCHITIS [None]
  - CLOSTRIDIUM DIFFICILE TOXIN TEST POSITIVE [None]
  - DIARRHOEA [None]
  - GASTROENTERITIS [None]
  - HALLUCINATION [None]
  - HYPOTENSION [None]
  - PNEUMONIA [None]
  - PULMONARY CONGESTION [None]
  - RENAL FAILURE ACUTE [None]
  - URINARY TRACT INFECTION [None]
  - URINARY TRACT INFECTION ENTEROCOCCAL [None]
  - URINARY TRACT INFECTION PSEUDOMONAL [None]
  - UROSEPSIS [None]
